FAERS Safety Report 11466162 (Version 1)
Quarter: 2015Q3

REPORT INFORMATION
  Report Type: Spontaneous
  Country: PH (occurrence: PH)
  Receive Date: 20150907
  Receipt Date: 20150907
  Transmission Date: 20151125
  Serious: Yes (Hospitalization)
  Sender: FDA-Public Use
  Company Number: PH-009507513-1509PHL002716

PATIENT
  Sex: Female

DRUGS (5)
  1. ASPILETS [Concomitant]
     Active Substance: ASPIRIN
  2. CARDIOTABS CARDIOTEA [Concomitant]
  3. HYDROCHLOROTHIAZIDE. [Concomitant]
     Active Substance: HYDROCHLOROTHIAZIDE
  4. AMLOVAS [Concomitant]
  5. COZAAR [Suspect]
     Active Substance: LOSARTAN POTASSIUM
     Indication: HYPERTENSION
     Dosage: ONE TABLET ONCE A DAY
     Route: 048

REACTIONS (1)
  - Dengue fever [Recovered/Resolved]
